FAERS Safety Report 10214436 (Version 1)
Quarter: 2014Q2

REPORT INFORMATION
  Report Type: Spontaneous
  Country: US (occurrence: None)
  Receive Date: 20140602
  Receipt Date: 20140602
  Transmission Date: 20141212
  Serious: Yes (Hospitalization)
  Sender: FDA-Public Use
  Company Number: None

PATIENT
  Age: 67 Year
  Sex: Female
  Weight: 80.2 kg

DRUGS (16)
  1. HYDROXYCHLOROQUINE 200 MG [Suspect]
     Indication: PLASMA CELL MYELOMA
     Route: 048
     Dates: start: 20140304
  2. SIROLIMUS 2 MG [Suspect]
     Indication: PLASMA CELL MYELOMA
     Dosage: D1 TO 4
     Route: 048
     Dates: start: 20140430, end: 20140505
  3. ACYCLOVIR [Concomitant]
  4. ARTIFICIAL TEARS [Concomitant]
  5. CALCIUM CARBONATE/VITAMIN D3 [Concomitant]
  6. FISH OIL [Concomitant]
  7. FLUCONAZOLE [Concomitant]
  8. LEVAQUIN [Concomitant]
  9. LEVOTHYROXINE [Concomitant]
  10. LORAZEPAM [Concomitant]
  11. MULTIVITAMIN [Concomitant]
  12. OMEPRAZOLE [Concomitant]
  13. ONDANSETRON [Concomitant]
  14. POLYETHYLENE GLYCOL [Concomitant]
  15. PRAVASTATIN [Concomitant]
  16. WHITE PETROLATUM-MINERAL OIL [Concomitant]

REACTIONS (3)
  - Pyelonephritis [None]
  - Culture urine positive [None]
  - Escherichia test positive [None]
